FAERS Safety Report 8077028-6 (Version None)
Quarter: 2012Q1

REPORT INFORMATION
  Report Type: 
  Country: None (occurrence: None)
  Receive Date: 20120127
  Receipt Date: 20120120
  Transmission Date: 20120608
  Serious: Yes (Hospitalization)
  Sender: FDA-Public Use
  Company Number: PHHO2012BF001467

PATIENT
  Sex: Male
  Weight: 6 kg

DRUGS (2)
  1. CGP 56697 [Suspect]
     Indication: MALARIA
     Dosage: 20 MG, BID
     Route: 048
     Dates: start: 20110926, end: 20110928
  2. CGP 56697 [Suspect]
     Dosage: 20 MG, BID
     Route: 048
     Dates: start: 20111017, end: 20111019

REACTIONS (2)
  - POISONING [None]
  - CHEMICAL POISONING [None]
